FAERS Safety Report 6961131-5 (Version None)
Quarter: 2010Q3

REPORT INFORMATION
  Report Type: 
  Country: None (occurrence: None)
  Receive Date: 20100901
  Receipt Date: 20100825
  Transmission Date: 20110219
  Serious: Yes (Other)
  Sender: FDA-Public Use
  Company Number: TW-WATSON-2010-11548

PATIENT
  Age: 43 Year
  Sex: Male

DRUGS (2)
  1. METHYLPREDNISOLONE ACETATE [Suspect]
     Indication: EXTRADURAL HAEMATOMA
     Dosage: 30 MG/KG, OF BODY WEIGHT
     Route: 040
  2. METHYLPREDNISOLONE ACETATE [Suspect]
     Dosage: 5.4 MG/KG, Q1H
     Route: 042

REACTIONS (2)
  - NEURALGIA [None]
  - PAIN [None]
